FAERS Safety Report 17771883 (Version 3)
Quarter: 2020Q3

REPORT INFORMATION
  Report Type: Report from Study
  Country: FR (occurrence: FR)
  Receive Date: 20200512
  Receipt Date: 20200909
  Transmission Date: 20201102
  Serious: Yes (Death, Other)
  Sender: FDA-Public Use
  Company Number: FR-TAKEDA-2020TUS022117

PATIENT
  Sex: Female
  Weight: 58 kg

DRUGS (1)
  1. IXAZOMIB [Suspect]
     Active Substance: IXAZOMIB
     Indication: PLASMA CELL MYELOMA
     Dosage: 4 MILLIGRAM
     Route: 048
     Dates: start: 20181120, end: 20190515

REACTIONS (2)
  - Plasma cell myeloma [Fatal]
  - Fatigue [Recovered/Resolved]

NARRATIVE: CASE EVENT DATE: 20190115
